FAERS Safety Report 9266763 (Version 1)
Quarter: 2013Q2

REPORT INFORMATION
  Report Type: Spontaneous
  Country: MY (occurrence: MY)
  Receive Date: 20130502
  Receipt Date: 20130502
  Transmission Date: 20140414
  Serious: Yes (Other)
  Sender: FDA-Public Use
  Company Number: MY-PFIZER INC-2013136446

PATIENT
  Age: 51 Year
  Sex: Male

DRUGS (3)
  1. DILANTIN [Suspect]
     Indication: EPILEPSY
     Dosage: 300 MG, 1X/DAY
     Route: 048
  2. PHENOBARBITONE [Concomitant]
  3. FOLIC ACID [Concomitant]
     Dosage: UNK

REACTIONS (1)
  - Stupor [Recovered/Resolved]
